FAERS Safety Report 24163697 (Version 1)
Quarter: 2024Q3

REPORT INFORMATION
  Report Type: Spontaneous
  Country: US (occurrence: US)
  Receive Date: 20240801
  Receipt Date: 20240801
  Transmission Date: 20241017
  Serious: No
  Sender: PFIZER
  Company Number: US-PFIZER INC-202400227362

PATIENT
  Age: 52 Year
  Sex: Male
  Weight: 102.06 kg

DRUGS (1)
  1. PAXLOVID [Suspect]
     Active Substance: NIRMATRELVIR\RITONAVIR
     Indication: COVID-19 treatment
     Dosage: [NIRMATRELVIR 300 MG]/[RITONAVIR 100 MG]; 1X/DAY
     Dates: start: 20220605

REACTIONS (6)
  - Product taste abnormal [Unknown]
  - Dysgeusia [Unknown]
  - Renal disorder [Unknown]
  - COVID-19 [Unknown]
  - Disease recurrence [Unknown]
  - Off label use [Unknown]

NARRATIVE: CASE EVENT DATE: 20220101
